FAERS Safety Report 11771912 (Version 5)
Quarter: 2016Q1

REPORT INFORMATION
  Report Type: Spontaneous
  Country: GB (occurrence: GB)
  Receive Date: 20151124
  Receipt Date: 20160106
  Transmission Date: 20160525
  Serious: Yes (Life-Threatening, Hospitalization)
  Sender: FDA-Public Use
  Company Number: GB-ACTAVIS-2015-25419

PATIENT
  Age: 24 Year
  Sex: Male
  Weight: 75 kg

DRUGS (2)
  1. QUETIAPINE (UNKNOWN) [Suspect]
     Active Substance: QUETIAPINE
     Indication: PRODUCT USED FOR UNKNOWN INDICATION
     Dosage: 50 MG, PRN. TWICE A DAY
     Route: 048
  2. ARIPIPRAZOLE (UNKNOWN) [Suspect]
     Active Substance: ARIPIPRAZOLE
     Indication: PRODUCT USED FOR UNKNOWN INDICATION
     Dosage: 5 MG, DAILY
     Route: 048

REACTIONS (1)
  - Neuroleptic malignant syndrome [Unknown]
